FAERS Safety Report 21697470 (Version 1)
Quarter: 2022Q4

REPORT INFORMATION
  Report Type: Report from Study
  Country: CA (occurrence: CA)
  Receive Date: 20221208
  Receipt Date: 20221208
  Transmission Date: 20230113
  Serious: Yes (Hospitalization, Other)
  Sender: FDA-Public Use
  Company Number: CA-BRISTOL-MYERS SQUIBB COMPANY-2022-044340

PATIENT
  Age: 72 Year
  Sex: Female

DRUGS (17)
  1. ORENCIA [Suspect]
     Active Substance: ABATACEPT
     Indication: Rheumatoid arthritis
     Route: 058
     Dates: start: 20160302
  2. ORENCIA [Suspect]
     Active Substance: ABATACEPT
     Route: 058
     Dates: start: 20160302
  3. ORENCIA [Suspect]
     Active Substance: ABATACEPT
     Route: 058
     Dates: start: 20160302
  4. ORENCIA [Suspect]
     Active Substance: ABATACEPT
     Route: 058
     Dates: start: 20160302
  5. ORENCIA [Suspect]
     Active Substance: ABATACEPT
     Route: 058
     Dates: start: 20160302
  6. APIXABAN [Concomitant]
     Active Substance: APIXABAN
     Indication: Product used for unknown indication
  7. SPIRONOLACTONE [Concomitant]
     Active Substance: SPIRONOLACTONE
     Indication: Product used for unknown indication
  8. RAMIPRIL [Concomitant]
     Active Substance: RAMIPRIL
     Indication: Product used for unknown indication
  9. AMLODIPINE [Concomitant]
     Active Substance: AMLODIPINE BESYLATE
     Indication: Product used for unknown indication
  10. METOPROLOL [Concomitant]
     Active Substance: METOPROLOL
     Indication: Product used for unknown indication
  11. ROSUVASTATIN [Concomitant]
     Active Substance: ROSUVASTATIN
     Indication: Product used for unknown indication
  12. RABEPRAZOLE [Concomitant]
     Active Substance: RABEPRAZOLE
     Indication: Product used for unknown indication
  13. POTASSIUM [Concomitant]
     Active Substance: POTASSIUM
     Indication: Product used for unknown indication
  14. ALBUTEROL [Concomitant]
     Active Substance: ALBUTEROL
     Indication: Product used for unknown indication
  15. DERMATOP [Concomitant]
     Active Substance: PREDNICARBATE
     Indication: Product used for unknown indication
  16. TOLOXIN [DIGOXIN] [Concomitant]
     Indication: Product used for unknown indication
     Route: 065
  17. LASIX [Concomitant]
     Active Substance: FUROSEMIDE
     Indication: Product used for unknown indication
     Route: 065

REACTIONS (6)
  - Blood pressure diastolic increased [Unknown]
  - Infection [Not Recovered/Not Resolved]
  - Oxygen saturation decreased [Unknown]
  - Blood pressure systolic increased [Unknown]
  - Heart rate decreased [Not Recovered/Not Resolved]
  - Diverticulitis intestinal perforated [Recovering/Resolving]

NARRATIVE: CASE EVENT DATE: 20220518
